FAERS Safety Report 21447619 (Version 1)
Quarter: 2022Q4

REPORT INFORMATION
  Report Type: Spontaneous
  Country: DE (occurrence: DE)
  Receive Date: 20221012
  Receipt Date: 20221012
  Transmission Date: 20230113
  Serious: Yes (Hospitalization, Other)
  Sender: FDA-Public Use
  Company Number: DE-MENARINI-DE-MEN-083599

PATIENT
  Age: 61 Year
  Sex: Male

DRUGS (3)
  1. ACETAMINOPHEN [Suspect]
     Active Substance: ACETAMINOPHEN
     Indication: Product used for unknown indication
     Dosage: UNK OVER A SHORT PERIOD
     Route: 065
     Dates: start: 202010
  2. METAMIZOLE [Suspect]
     Active Substance: METAMIZOLE
     Indication: Pain management
     Dosage: 2 GRAM, QD
     Route: 065
     Dates: start: 202012, end: 202103
  3. PREGABALIN [Concomitant]
     Active Substance: PREGABALIN
     Indication: Product used for unknown indication
     Dosage: UNK OVER A SHORT PERIOD
     Route: 065
     Dates: start: 202010

REACTIONS (1)
  - Drug-induced liver injury [Recovered/Resolved]
